FAERS Safety Report 8224083-6 (Version None)
Quarter: 2012Q1

REPORT INFORMATION
  Report Type: 
  Country: None (occurrence: None)
  Receive Date: 20120321
  Receipt Date: 20120316
  Transmission Date: 20120608
  Serious: Yes (Hospitalization, Other)
  Sender: FDA-Public Use
  Company Number: PHEH2010US02624

PATIENT
  Sex: Female

DRUGS (34)
  1. AREDIA [Suspect]
     Indication: HYPERCALCAEMIA
  2. PRILOSEC [Concomitant]
  3. IMODIUM [Concomitant]
  4. LORAZEPAM [Concomitant]
  5. REMERON [Concomitant]
  6. NOVOLOG [Concomitant]
  7. BENZODIAZEPINES [Concomitant]
  8. MIRALAX [Concomitant]
  9. AREDIA [Suspect]
     Indication: MULTIPLE MYELOMA
     Dosage: 90 MG, QMO
     Route: 042
     Dates: start: 19951229, end: 20020329
  10. ZOMETA [Suspect]
     Dosage: 4 MG, UNK
     Route: 042
     Dates: start: 20020502
  11. MELPHALAN HYDROCHLORIDE [Suspect]
  12. PIROXICAM [Concomitant]
  13. TICLOPIDINE HCL [Concomitant]
     Indication: TRANSIENT ISCHAEMIC ATTACK
  14. PREDNISONE [Concomitant]
  15. OXYCONTIN [Concomitant]
  16. PROTONIX [Concomitant]
  17. GATIFLOXACIN [Concomitant]
  18. ADVAIR DISKUS 100/50 [Concomitant]
  19. ASPIRIN [Concomitant]
  20. DURAGESIC-100 [Concomitant]
  21. LASIX [Concomitant]
  22. PEPCID [Concomitant]
  23. ALPRAZOLAM [Concomitant]
  24. PAROXETINE HCL [Concomitant]
  25. CODEINE [Concomitant]
  26. CYMBALTA [Concomitant]
  27. STEROIDS NOS [Concomitant]
  28. LANTUS [Concomitant]
  29. LIDODERM [Concomitant]
  30. FLAGYL [Concomitant]
  31. SPIRIVA [Concomitant]
  32. HYDROCHLOROTHIAZIDE [Concomitant]
  33. ZOLPIDEM [Concomitant]
  34. COLACE [Concomitant]

REACTIONS (100)
  - ARTHRALGIA [None]
  - ATRIAL FIBRILLATION [None]
  - MOUTH ULCERATION [None]
  - BONE LOSS [None]
  - SPINAL DEFORMITY [None]
  - INTERVERTEBRAL DISC PROTRUSION [None]
  - FISTULA DISCHARGE [None]
  - RED BLOOD CELL COUNT DECREASED [None]
  - OSTEOPOROSIS [None]
  - SCOLIOSIS [None]
  - DYSPNOEA [None]
  - ABSCESS ORAL [None]
  - APICAL GRANULOMA [None]
  - BONE LESION [None]
  - MALIGNANT MELANOMA [None]
  - COMPRESSION FRACTURE [None]
  - MYOCARDIAL INFARCTION [None]
  - TYPE 2 DIABETES MELLITUS [None]
  - BRADYCARDIA [None]
  - EMPHYSEMA [None]
  - BLOOD CHOLESTEROL INCREASED [None]
  - GASTROOESOPHAGEAL REFLUX DISEASE [None]
  - SUPRAVENTRICULAR TACHYCARDIA [None]
  - PNEUMONIA PNEUMOCOCCAL [None]
  - ANHEDONIA [None]
  - PARAESTHESIA ORAL [None]
  - HYPOAESTHESIA ORAL [None]
  - PRIMARY SEQUESTRUM [None]
  - DEFORMITY [None]
  - OSTEOARTHRITIS [None]
  - HAEMOGLOBIN DECREASED [None]
  - BACK PAIN [None]
  - SUBCUTANEOUS ABSCESS [None]
  - CARDIOMEGALY [None]
  - HEART RATE IRREGULAR [None]
  - VOMITING [None]
  - PAIN [None]
  - PHYSICAL DISABILITY [None]
  - INFECTION [None]
  - OSTEORADIONECROSIS [None]
  - BIPOLAR DISORDER [None]
  - AORTIC CALCIFICATION [None]
  - HIP FRACTURE [None]
  - CORONARY ARTERY DISEASE [None]
  - ASTHMA [None]
  - GASTROINTESTINAL HAEMORRHAGE [None]
  - RENAL FAILURE CHRONIC [None]
  - PROTEIN URINE PRESENT [None]
  - ANXIETY [None]
  - VENOUS THROMBOSIS [None]
  - ORAL CANDIDIASIS [None]
  - GINGIVAL SWELLING [None]
  - ABSCESS NECK [None]
  - HAEMATOMA [None]
  - OROPHARYNGEAL CANDIDIASIS [None]
  - PULMONARY HYPERTENSION [None]
  - IMMUNOSUPPRESSION [None]
  - DRUG HYPERSENSITIVITY [None]
  - SWELLING FACE [None]
  - JOINT EFFUSION [None]
  - CHEST PAIN [None]
  - PLEURAL EFFUSION [None]
  - INJURY [None]
  - EXPOSED BONE IN JAW [None]
  - SOFT TISSUE DISORDER [None]
  - OSTEOMYELITIS [None]
  - PURULENT DISCHARGE [None]
  - SWELLING [None]
  - PAIN IN JAW [None]
  - URINARY TRACT INFECTION [None]
  - LUMBAR SPINAL STENOSIS [None]
  - NEOPLASM MALIGNANT [None]
  - ATELECTASIS [None]
  - MYELOMA RECURRENCE [None]
  - INTERVERTEBRAL DISC DISORDER [None]
  - NEUROPATHY PERIPHERAL [None]
  - PATELLOFEMORAL PAIN SYNDROME [None]
  - TACHYCARDIA [None]
  - SEPSIS SYNDROME [None]
  - OSTEONECROSIS OF JAW [None]
  - LYMPHOEDEMA [None]
  - RESPIRATORY TRACT INFECTION [None]
  - ARTHRITIS [None]
  - PYREXIA [None]
  - HEPATOMEGALY [None]
  - ANAEMIA [None]
  - GLOMERULAR FILTRATION RATE DECREASED [None]
  - LEUKOPENIA [None]
  - HERPES ZOSTER [None]
  - SYSTEMIC INFLAMMATORY RESPONSE SYNDROME [None]
  - AUTOIMMUNE DISORDER [None]
  - DYSPHAGIA [None]
  - INSOMNIA [None]
  - DEPRESSION [None]
  - RESPIRATORY FAILURE [None]
  - CHRONIC OBSTRUCTIVE PULMONARY DISEASE [None]
  - BLOOD CREATININE INCREASED [None]
  - PELVIC FRACTURE [None]
  - FALL [None]
  - DIARRHOEA [None]
